FAERS Safety Report 19845717 (Version 1)
Quarter: 2021Q3

REPORT INFORMATION
  Report Type: Spontaneous
  Country: BI (occurrence: BI)
  Receive Date: 20210916
  Receipt Date: 20210916
  Transmission Date: 20211014
  Serious: Yes (Other)
  Sender: FDA-Public Use
  Company Number: BI-B.I. PHARMACEUTICALS,INC./RIDGEFIELD-2021-BI-126131

PATIENT
  Age: 59 Year
  Sex: Male

DRUGS (1)
  1. JARDIANCE [Suspect]
     Active Substance: EMPAGLIFLOZIN
     Indication: CARDIAC DISORDER
     Dosage: FREQUENCY 2?FREQUENCY TIME 2 DAY
     Route: 048
     Dates: start: 20210616, end: 20210909

REACTIONS (3)
  - Cardiac arrest [Recovered/Resolved]
  - Road traffic accident [Unknown]
  - Myocardial infarction [Recovered/Resolved]

NARRATIVE: CASE EVENT DATE: 2021
